FAERS Safety Report 6702247-8 (Version None)
Quarter: 2010Q2

REPORT INFORMATION
  Report Type: 
  Country: None (occurrence: None)
  Receive Date: 20100429
  Receipt Date: 20100423
  Transmission Date: 20101027
  Serious: Yes (Hospitalization)
  Sender: FDA-Public Use
  Company Number: JP-MERCK-1003USA04386

PATIENT
  Age: 73 Year
  Sex: Male

DRUGS (16)
  1. JANUVIA [Suspect]
     Indication: TYPE 2 DIABETES MELLITUS
     Route: 048
     Dates: start: 20091228, end: 20100213
  2. STAYBLA [Concomitant]
     Route: 065
     Dates: start: 20100104, end: 20100220
  3. MUCODYNE [Concomitant]
     Route: 065
     Dates: end: 20100303
  4. MUCOSOLVAN [Concomitant]
     Route: 065
     Dates: end: 20100303
  5. TANATRIL [Concomitant]
     Route: 065
     Dates: start: 20091229, end: 20100303
  6. SYMMETREL [Concomitant]
     Route: 065
     Dates: start: 20091229, end: 20100220
  7. PENTCILLIN [Concomitant]
     Route: 065
     Dates: start: 20091228, end: 20100104
  8. URIEF [Concomitant]
     Route: 065
     Dates: start: 20100105, end: 20100303
  9. MAGMITT [Concomitant]
     Route: 065
     Dates: start: 20100107, end: 20100303
  10. PLETAL [Concomitant]
     Route: 065
     Dates: start: 20100107, end: 20100213
  11. ALOSENN [Concomitant]
     Route: 065
     Dates: start: 20100112, end: 20100120
  12. AMBISOME [Concomitant]
     Route: 065
     Dates: start: 20100112, end: 20100125
  13. ITRIZOLE [Concomitant]
     Route: 065
     Dates: start: 20100129, end: 20100211
  14. UNASYN [Concomitant]
     Route: 065
     Dates: start: 20100204, end: 20100217
  15. PROMAC [Concomitant]
     Route: 065
     Dates: start: 20100208, end: 20100302
  16. URSO 250 [Concomitant]
     Route: 065
     Dates: start: 20100210, end: 20100303

REACTIONS (3)
  - OEDEMA [None]
  - PLEURAL EFFUSION [None]
  - WEIGHT INCREASED [None]
